FAERS Safety Report 4384181-4 (Version None)
Quarter: 2004Q2

REPORT INFORMATION
  Report Type: 
  Country: None (occurrence: None)
  Receive Date: 20040621
  Receipt Date: 20040615
  Transmission Date: 20050107
  Serious: Yes (Other)
  Sender: FDA-Public Use
  Company Number: 2004219162GB

PATIENT
  Age: 49 Year
  Sex: Male

DRUGS (1)
  1. SULFASALAZINE [Suspect]
     Indication: COLITIS ULCERATIVE
     Dosage: 3 G/DAY, ORAL
     Route: 048
     Dates: start: 20031222, end: 20031229

REACTIONS (2)
  - CONJUNCTIVITIS [None]
  - INFLUENZA LIKE ILLNESS [None]
